FAERS Safety Report 25514859 (Version 1)
Quarter: 2025Q3

REPORT INFORMATION
  Report Type: Spontaneous
  Country: US (occurrence: US)
  Receive Date: 20250703
  Receipt Date: 20250703
  Transmission Date: 20251021
  Serious: No
  Sender: RADIUS PHARM
  Company Number: US-RADIUS HEALTH, INC.-2023US004977

PATIENT
  Age: 64 Year
  Sex: Female
  Weight: 57.279 kg

DRUGS (12)
  1. TYMLOS [Suspect]
     Active Substance: ABALOPARATIDE
     Indication: Senile osteoporosis
     Route: 058
     Dates: start: 20230912
  2. TYMLOS [Suspect]
     Active Substance: ABALOPARATIDE
  3. TYMLOS [Suspect]
     Active Substance: ABALOPARATIDE
     Route: 058
  4. TYMLOS [Suspect]
     Active Substance: ABALOPARATIDE
     Route: 058
  5. TYMLOS [Suspect]
     Active Substance: ABALOPARATIDE
     Route: 058
  6. MAGNESIUM [Concomitant]
     Active Substance: MAGNESIUM
     Indication: Supplementation therapy
  7. TYLENOL [Concomitant]
     Active Substance: ACETAMINOPHEN
     Indication: Arthritis
  8. MAGNESIUM CITRATE [Concomitant]
     Active Substance: MAGNESIUM CITRATE
     Indication: Constipation
  9. VITAMIN K [Concomitant]
     Active Substance: PHYTONADIONE
     Indication: Product used for unknown indication
  10. VITAMINS NOS [Concomitant]
     Active Substance: VITAMINS
     Indication: Product used for unknown indication
  11. BIOTIN [Concomitant]
     Active Substance: BIOTIN
     Indication: Product used for unknown indication
  12. SUMATRIPTAN [Concomitant]
     Active Substance: SUMATRIPTAN
     Indication: Migraine

REACTIONS (11)
  - Constipation [Not Recovered/Not Resolved]
  - Headache [Not Recovered/Not Resolved]
  - Nausea [Unknown]
  - Injection site urticaria [Not Recovered/Not Resolved]
  - Injection site pain [Not Recovered/Not Resolved]
  - Injection site bruising [Unknown]
  - Asthenia [Unknown]
  - Dizziness [Unknown]
  - Bone pain [Unknown]
  - Fatigue [Unknown]
  - Blood calcium increased [Unknown]

NARRATIVE: CASE EVENT DATE: 20231101
